FAERS Safety Report 15740213 (Version 1)
Quarter: 2018Q4

REPORT INFORMATION
  Report Type: Spontaneous
  Country: US (occurrence: US)
  Receive Date: 20181219
  Receipt Date: 20181219
  Transmission Date: 20190205
  Serious: Yes (Other)
  Sender: FDA-Public Use
  Company Number: US-PFIZER INC-2018516532

PATIENT
  Age: 48 Year
  Sex: Female
  Weight: 114 kg

DRUGS (1)
  1. TOVIAZ [Suspect]
     Active Substance: FESOTERODINE FUMARATE
     Indication: HYPERTONIC BLADDER
     Dosage: 8 MG, 1X/DAY
     Dates: start: 201806

REACTIONS (3)
  - Upper limb fracture [Unknown]
  - Fall [Unknown]
  - Humerus fracture [Unknown]

NARRATIVE: CASE EVENT DATE: 20181013
